FAERS Safety Report 5663719-0 (Version None)
Quarter: 2008Q1

REPORT INFORMATION
  Report Type: 
  Country: None (occurrence: None)
  Receive Date: 20080307
  Receipt Date: 20080228
  Transmission Date: 20080703
  Serious: Yes (Other)
  Sender: FDA-Public Use
  Company Number: 2008005203

PATIENT
  Age: 41 Year
  Sex: Male
  Weight: 90.7 kg

DRUGS (1)
  1. ROGAINE [Suspect]
     Indication: ALOPECIA
     Dosage: 1 ML TWICE A DAY (2 IN 1 D), TOPICAL
     Route: 061
     Dates: start: 20080112, end: 20080224

REACTIONS (3)
  - HEADACHE [None]
  - SYNCOPE [None]
  - VISION BLURRED [None]
